FAERS Safety Report 7624343-3 (Version None)
Quarter: 2011Q3

REPORT INFORMATION
  Report Type: 
  Country: None (occurrence: None)
  Receive Date: 20110720
  Receipt Date: 20110711
  Transmission Date: 20111222
  Serious: Yes (Hospitalization)
  Sender: FDA-Public Use
  Company Number: JP-ASTRAZENECA-2011SE34773

PATIENT
  Age: 27723 Day
  Sex: Female
  Weight: 34 kg

DRUGS (2)
  1. DIPRIVAN [Suspect]
     Indication: INDUCTION AND MAINTENANCE OF ANAESTHESIA
     Route: 042
     Dates: start: 20110526, end: 20110526
  2. SUXAMETHONIUM [Concomitant]
     Route: 042
     Dates: start: 20110526, end: 20110526

REACTIONS (1)
  - LIVER DISORDER [None]
